FAERS Safety Report 21192340 (Version 2)
Quarter: 2022Q3

REPORT INFORMATION
  Report Type: Spontaneous
  Country: AU (occurrence: AU)
  Receive Date: 20220809
  Receipt Date: 20220812
  Transmission Date: 20221027
  Serious: Yes (Hospitalization)
  Sender: FDA-Public Use
  Company Number: AU-009507513-2208AUS001906

PATIENT
  Age: 83 Year
  Sex: Female

DRUGS (14)
  1. LAGEVRIO [Suspect]
     Active Substance: MOLNUPIRAVIR
     Indication: COVID-19
     Dosage: TWICE A DAY
     Route: 048
     Dates: start: 20220630, end: 20220703
  2. OMEPRAZOLE [Concomitant]
     Active Substance: OMEPRAZOLE
     Dosage: 1 TABLET, DAILY
     Route: 048
  3. AQUAE DRY MOUTH [Concomitant]
     Dosage: SPRAY, 1 SPRAY EVERY 4 HOURS
  4. METOPROLOL TARTRATE [Concomitant]
     Active Substance: METOPROLOL TARTRATE
     Dosage: 1 TABLET, TWICE A DAY
     Route: 048
  5. METFORMIN HYDROCHLORIDE [Concomitant]
     Active Substance: METFORMIN HYDROCHLORIDE
     Dosage: 1 TABLET, IN THE MORNING
     Route: 048
  6. DIGOXIN [Concomitant]
     Active Substance: DIGOXIN
     Dosage: 1.5 TABLET, DAILY
     Route: 048
  7. FUROSEMIDE [Concomitant]
     Active Substance: FUROSEMIDE
     Dosage: 1 TABLET, TWICE A DAY
     Route: 048
  8. NITROGLYCERIN [Concomitant]
     Active Substance: NITROGLYCERIN
     Dosage: SPRAY, 400 MCG/DOSE, 1 SPRAY DAILY AS NEEDED (PRN)
  9. KENACOMB OTIC [Concomitant]
     Dosage: 1 APPLICATION, BOTH SIDES
  10. LIPITOR [Concomitant]
     Active Substance: ATORVASTATIN CALCIUM
     Dosage: 0.5 TABLET, IN THE EVENING
     Route: 048
  11. MAGNESIUM ASPARTATE [Concomitant]
     Active Substance: MAGNESIUM ASPARTATE
     Dosage: 2 TABLETS, TWICE A DAY
     Route: 048
  12. PROLIA [Concomitant]
     Active Substance: DENOSUMAB
     Dosage: 1 INJECTION, 6 MONTHLY
  13. VESICARE [Concomitant]
     Active Substance: SOLIFENACIN SUCCINATE
     Dosage: 0.5 TABLET, DAILY
     Route: 048
  14. XARELTO [Concomitant]
     Active Substance: RIVAROXABAN
     Dosage: 1 TABLET, DAILY
     Route: 048

REACTIONS (1)
  - Diarrhoea [Recovered/Resolved]

NARRATIVE: CASE EVENT DATE: 20220101
